FAERS Safety Report 12690931 (Version 2)
Quarter: 2016Q3

REPORT INFORMATION
  Report Type: Report from Study
  Country: TR (occurrence: TR)
  Receive Date: 20160826
  Receipt Date: 20160906
  Transmission Date: 20161109
  Serious: Yes (Hospitalization, Other)
  Sender: FDA-Public Use
  Company Number: TR-B.I. PHARMACEUTICALS,INC./RIDGEFIELD-2016-BI-33684TK

PATIENT
  Age: 61 Year
  Sex: Male
  Weight: 65 kg

DRUGS (5)
  1. BIBF 1120 [Suspect]
     Active Substance: NINTEDANIB
     Dosage: 400 MG
     Route: 048
     Dates: start: 20160306, end: 20160427
  2. BIBF 1120 [Suspect]
     Active Substance: NINTEDANIB
     Dosage: 400 MG
     Route: 048
  3. DOCETAXEL. [Concomitant]
     Active Substance: DOCETAXEL
     Indication: LUNG NEOPLASM MALIGNANT
     Dosage: DOSE PER APPLICATION AND DAILY DOSE: 75 MG/M2
     Route: 042
     Dates: start: 20160204, end: 20160712
  4. BIBF 1120 [Suspect]
     Active Substance: NINTEDANIB
     Dosage: 400 MG
     Route: 048
     Dates: end: 20160816
  5. BIBF 1120 [Suspect]
     Active Substance: NINTEDANIB
     Indication: NON-SMALL CELL LUNG CANCER
     Dosage: 400 MG
     Route: 048
     Dates: start: 20160304

REACTIONS (2)
  - Malignant neoplasm progression [Not Recovered/Not Resolved]
  - Pneumonia [Recovered/Resolved]

NARRATIVE: CASE EVENT DATE: 20160505
